FAERS Safety Report 7425871-6 (Version None)
Quarter: 2011Q2

REPORT INFORMATION
  Report Type: 
  Country: None (occurrence: None)
  Receive Date: 20110420
  Receipt Date: 20110415
  Transmission Date: 20111010
  Serious: Yes (Life-Threatening)
  Sender: FDA-Public Use
  Company Number: JP-ROCHE-722594

PATIENT
  Sex: Female
  Weight: 45 kg

DRUGS (35)
  1. TOCILIZUMAB [Suspect]
     Route: 041
     Dates: start: 20090330, end: 20090330
  2. TOCILIZUMAB [Suspect]
     Route: 041
     Dates: start: 20090831, end: 20090831
  3. TOCILIZUMAB [Suspect]
     Route: 041
     Dates: start: 20091124, end: 20091124
  4. PREDONINE [Concomitant]
     Route: 048
     Dates: start: 20080821
  5. TOCILIZUMAB [Suspect]
     Route: 041
     Dates: start: 20090727, end: 20090727
  6. TOCILIZUMAB [Suspect]
     Route: 041
     Dates: start: 20090928, end: 20090928
  7. TOCILIZUMAB [Suspect]
     Route: 041
     Dates: start: 20100708, end: 20100708
  8. IRINATOLON [Concomitant]
     Route: 048
  9. KETOPROFEN [Concomitant]
     Dosage: FORM: TAPE.
     Route: 062
  10. TOCILIZUMAB [Suspect]
     Route: 041
     Dates: start: 20100426, end: 20100426
  11. TOCILIZUMAB [Suspect]
     Route: 041
     Dates: start: 20081030, end: 20081030
  12. TOCILIZUMAB [Suspect]
     Route: 041
     Dates: start: 20090629, end: 20100722
  13. TOCILIZUMAB [Suspect]
     Route: 041
     Dates: start: 20091228, end: 20091228
  14. PYDOXAL [Concomitant]
     Dosage: DRUG REPORTED: PYDOXAL TAB.
     Route: 048
  15. TOCILIZUMAB [Suspect]
     Route: 041
     Dates: start: 20080904, end: 20080904
  16. RHEUMATREX [Concomitant]
     Dosage: NOTE: AMOUNT 2
     Route: 048
  17. GASPORT [Concomitant]
     Route: 048
  18. TOCILIZUMAB [Suspect]
     Indication: RHEUMATOID ARTHRITIS
     Route: 041
     Dates: start: 20080612, end: 20080612
  19. TOCILIZUMAB [Suspect]
     Route: 041
     Dates: start: 20080710, end: 20100710
  20. TOCILIZUMAB [Suspect]
     Route: 041
     Dates: start: 20080807, end: 20080807
  21. TOCILIZUMAB [Suspect]
     Route: 041
     Dates: start: 20081002, end: 20081002
  22. TOCILIZUMAB [Suspect]
     Route: 041
     Dates: start: 20081229, end: 20081229
  23. TOCILIZUMAB [Suspect]
     Route: 041
     Dates: start: 20090223, end: 20090223
  24. TOCILIZUMAB [Suspect]
     Route: 041
     Dates: start: 20100118, end: 20100118
  25. TOCILIZUMAB [Suspect]
     Route: 041
     Dates: start: 20100302, end: 20100302
  26. TOCILIZUMAB [Suspect]
     Dosage: DISCONTINUED
     Route: 041
     Dates: start: 20100819, end: 20100819
  27. PREDONINE [Concomitant]
     Route: 048
     Dates: start: 20080820
  28. TOCILIZUMAB [Suspect]
     Route: 041
     Dates: start: 20090427, end: 20090427
  29. TOCILIZUMAB [Suspect]
     Route: 041
     Dates: start: 20091026, end: 20091026
  30. TOCILIZUMAB [Suspect]
     Route: 041
     Dates: start: 20100329, end: 20100329
  31. TOCILIZUMAB [Suspect]
     Route: 041
     Dates: start: 20100511, end: 20100511
  32. TOCILIZUMAB [Suspect]
     Route: 041
     Dates: start: 20081201, end: 20081201
  33. TOCILIZUMAB [Suspect]
     Route: 041
     Dates: start: 20090126, end: 20090126
  34. TOCILIZUMAB [Suspect]
     Route: 041
     Dates: start: 20090525, end: 20090525
  35. MECOBALAMIN [Concomitant]
     Route: 048

REACTIONS (2)
  - BREAST CANCER [None]
  - ORAL DISCOMFORT [None]
